FAERS Safety Report 7380027-0 (Version None)
Quarter: 2011Q1

REPORT INFORMATION
  Report Type: 
  Country: None (occurrence: None)
  Receive Date: 20110329
  Receipt Date: 20110112
  Transmission Date: 20110831
  Serious: Yes (Hospitalization)
  Sender: FDA-Public Use
  Company Number: DE-AMGEN-DEUNI2010003313

PATIENT
  Age: 15 Year
  Sex: Male

DRUGS (11)
  1. AZATHIOPRIN [Concomitant]
     Dosage: 75 MG, UNK
  2. CALCIUM [Concomitant]
     Dosage: 1500 MG, UNK
  3. DARBEPOETIN ALFA [Suspect]
     Indication: RENAL FAILURE CHRONIC
     Dosage: 15 A?G, QWK
     Route: 042
     Dates: start: 20040827
  4. MOBIX [Concomitant]
     Dosage: 8 G, UNK
  5. LEVOTHYROXINE [Concomitant]
     Dosage: 75 A?G, UNK
  6. CALCIUM BROMIDE [Concomitant]
  7. CYSTEINE [Concomitant]
     Dosage: 180 MG, UNK
  8. PREDNISONE [Concomitant]
     Dosage: 50 MG/DL, UNK
  9. FERRLECIT                          /00345601/ [Concomitant]
     Dosage: 40 MG, Q2WK
  10. GENOTROPIN [Concomitant]
     Dosage: 1.6 A?G, UNK
  11. MAGNESIUM [Concomitant]

REACTIONS (1)
  - GOITRE [None]
